FAERS Safety Report 12040313 (Version 7)
Quarter: 2019Q3

REPORT INFORMATION
  Report Type: Spontaneous
  Country: CA (occurrence: CA)
  Receive Date: 20160208
  Receipt Date: 20190912
  Transmission Date: 20191004
  Serious: Yes (Other)
  Sender: FDA-Public Use
  Company Number: CA-PFIZER INC-2015265631

PATIENT
  Age: 66 Year
  Sex: Male

DRUGS (8)
  1. XELJANZ [Suspect]
     Active Substance: TOFACITINIB CITRATE
     Dosage: 5 MG, 2X/DAY
     Route: 048
     Dates: start: 20190828
  2. LORAZEPAM. [Concomitant]
     Active Substance: LORAZEPAM
     Dosage: UNK
  3. LASIX [Concomitant]
     Active Substance: FUROSEMIDE
     Dosage: 20 MG OD (ONCE DAILY), 1-2 TIMES A WEEK PRN (AS NEEDED)
     Route: 065
  4. XELJANZ [Suspect]
     Active Substance: TOFACITINIB CITRATE
     Indication: RHEUMATOID ARTHRITIS
     Dosage: 5 MG, 2X/DAY
     Route: 048
     Dates: start: 20150716, end: 2016
  5. ESCITALOPRAM [Concomitant]
     Active Substance: ESCITALOPRAM OXALATE
     Dosage: UNK
     Route: 065
  6. OXYCONTIN [Concomitant]
     Active Substance: OXYCODONE HYDROCHLORIDE
     Dosage: UNK
  7. WELLBUTRIN [Concomitant]
     Active Substance: BUPROPION HYDROCHLORIDE
     Dosage: UNK
     Route: 065
  8. VITAMIN D3 [Concomitant]
     Active Substance: CHOLECALCIFEROL
     Dosage: UNK
     Route: 065

REACTIONS (11)
  - Osteoarthritis [Not Recovered/Not Resolved]
  - Peripheral venous disease [Unknown]
  - Pain in extremity [Unknown]
  - Spinal disorder [Not Recovered/Not Resolved]
  - Drug ineffective [Unknown]
  - Carpal tunnel syndrome [Unknown]
  - Tendon disorder [Not Recovered/Not Resolved]
  - Back pain [Not Recovered/Not Resolved]
  - Chondrocalcinosis pyrophosphate [Unknown]
  - Intervertebral disc degeneration [Not Recovered/Not Resolved]
  - Arthralgia [Unknown]
